FAERS Safety Report 7573488-5 (Version None)
Quarter: 2011Q2

REPORT INFORMATION
  Report Type: 
  Country: None (occurrence: None)
  Receive Date: 20110627
  Receipt Date: 20110613
  Transmission Date: 20111010
  Serious: Yes (Death)
  Sender: FDA-Public Use
  Company Number: GB-JNJFOC-20110605840

PATIENT
  Age: 28 Year
  Sex: Male
  Weight: 190.5 kg

DRUGS (4)
  1. INFLIXIMAB, RECOMBINANT [Suspect]
     Indication: RHEUMATOID ARTHRITIS
     Route: 042
     Dates: start: 20110329, end: 20110510
  2. NAPROXEN [Concomitant]
  3. AZULFIDINE [Concomitant]
  4. METHOTREXATE [Concomitant]

REACTIONS (1)
  - SUDDEN DEATH [None]
